FAERS Safety Report 12294437 (Version 1)
Quarter: 2016Q2

REPORT INFORMATION
  Report Type: Spontaneous
  Country: US (occurrence: US)
  Receive Date: 20160422
  Receipt Date: 20160422
  Transmission Date: 20160815
  Serious: No
  Sender: FDA-Public Use
  Company Number: US-GLENMARK PHARMACEUTICALS INC, USA.-2016GMK021916

PATIENT

DRUGS (1)
  1. RIZATRIPTAN BENZOATE. [Suspect]
     Active Substance: RIZATRIPTAN BENZOATE
     Indication: MIGRAINE
     Dosage: 1 DF, ONCE IN A MONTH
     Route: 048
     Dates: start: 20150901

REACTIONS (12)
  - Anal incontinence [Recovered/Resolved]
  - Drug administration error [Recovered/Resolved]
  - Product substitution issue [Unknown]
  - Dysgeusia [Recovered/Resolved]
  - Migraine [Recovered/Resolved]
  - Feeling hot [Recovered/Resolved]
  - Product solubility abnormal [Recovered/Resolved]
  - Malaise [Recovered/Resolved]
  - Vomiting [Recovered/Resolved]
  - Drug ineffective [Unknown]
  - Nausea [Recovered/Resolved]
  - Blepharospasm [Recovered/Resolved]

NARRATIVE: CASE EVENT DATE: 20150901
